FAERS Safety Report 13707830 (Version 2)
Quarter: 2017Q3

REPORT INFORMATION
  Report Type: Spontaneous
  Country: SK (occurrence: SK)
  Receive Date: 20170630
  Receipt Date: 20170803
  Transmission Date: 20171127
  Serious: Yes (Other)
  Sender: FDA-Public Use
  Company Number: SK-PFIZER INC-2017280215

PATIENT
  Sex: Female

DRUGS (3)
  1. XALKORI [Suspect]
     Active Substance: CRIZOTINIB
     Dosage: 250 MG, DAILY FOR 2 WEEKS
     Route: 048
  2. XALKORI [Suspect]
     Active Substance: CRIZOTINIB
     Indication: NON-SMALL CELL LUNG CANCER
     Dosage: 250 MG, TWICE A DAY
     Route: 048
  3. XALKORI [Suspect]
     Active Substance: CRIZOTINIB
     Dosage: 250 MG, EVERY OTHER DAY (1 AND 2 BY STABLE PARAMETERS)
     Route: 048

REACTIONS (7)
  - Hepatotoxicity [Recovered/Resolved]
  - Nephropathy toxic [Not Recovered/Not Resolved]
  - Nausea [Unknown]
  - Eye symptom [Unknown]
  - Neutropenia [Unknown]
  - Diarrhoea [Unknown]
  - Hyperkalaemia [Recovered/Resolved]
